FAERS Safety Report 10384154 (Version 3)
Quarter: 2016Q1

REPORT INFORMATION
  Report Type: Spontaneous
  Country: US (occurrence: US)
  Receive Date: 20140814
  Receipt Date: 20160217
  Transmission Date: 20160525
  Serious: Yes (Hospitalization)
  Sender: FDA-Public Use
  Company Number: US-PFIZER INC-2014222877

PATIENT
  Age: 70 Year
  Sex: Female

DRUGS (3)
  1. ALPRAZOLAM. [Concomitant]
     Active Substance: ALPRAZOLAM
     Dosage: 0.5 MG, UNK
     Dates: start: 20120607
  2. CARAFATE [Concomitant]
     Active Substance: SUCRALFATE
     Dosage: 10 MG/ML SUSPENSION, UNK
     Dates: start: 20120607
  3. TYGACIL [Suspect]
     Active Substance: TIGECYCLINE
     Indication: WOUND INFECTION
     Dosage: 50 MG IN 100 ML, UNK
     Route: 042
     Dates: start: 20120511, end: 20120524

REACTIONS (9)
  - Rash [Unknown]
  - Ulcer [Unknown]
  - Multi-organ disorder [Unknown]
  - Skin lesion [Unknown]
  - Vasculitis [Unknown]
  - Scar [Unknown]
  - Neuralgia [Unknown]
  - Alopecia [Unknown]
  - Abdominal pain [Unknown]

NARRATIVE: CASE EVENT DATE: 201206
